FAERS Safety Report 8192866-7 (Version None)
Quarter: 2012Q1

REPORT INFORMATION
  Report Type: 
  Country: None (occurrence: None)
  Receive Date: 20120308
  Receipt Date: 20120229
  Transmission Date: 20120608
  Serious: Yes (Other)
  Sender: FDA-Public Use
  Company Number: CA-JNJFOC-20120300500

PATIENT
  Sex: Female

DRUGS (5)
  1. REMICADE [Suspect]
     Indication: CROHN'S DISEASE
     Route: 042
     Dates: start: 20081105
  2. ZOLOFT [Concomitant]
     Route: 065
  3. REMICADE [Suspect]
     Route: 042
     Dates: start: 20120110
  4. IMURAN [Concomitant]
     Route: 065
  5. DIANE 35 [Concomitant]
     Route: 065

REACTIONS (2)
  - PHARYNGITIS STREPTOCOCCAL [None]
  - ACUTE FEBRILE NEUTROPHILIC DERMATOSIS [None]
